FAERS Safety Report 23997764 (Version 3)
Quarter: 2024Q3

REPORT INFORMATION
  Report Type: Spontaneous
  Country: JP (occurrence: JP)
  Receive Date: 20240621
  Receipt Date: 20240917
  Transmission Date: 20241017
  Serious: Yes (Other)
  Sender: UCB
  Company Number: JP-UCBJ-CD202405522UCBPHAPROD

PATIENT
  Age: 26 Year
  Sex: Female

DRUGS (4)
  1. LEVETIRACETAM [Suspect]
     Active Substance: LEVETIRACETAM
     Indication: Epilepsy
     Dosage: UNK
     Route: 048
  2. LAMOTRIGINE [Suspect]
     Active Substance: LAMOTRIGINE
     Indication: Epilepsy
     Dosage: UNK
     Route: 048
  3. AMLODIPINE [Suspect]
     Active Substance: AMLODIPINE BESYLATE
     Indication: Product used for unknown indication
     Dosage: UNK
  4. PERAMPANEL [Concomitant]
     Active Substance: PERAMPANEL
     Indication: Epilepsy
     Dosage: UNK
     Route: 048

REACTIONS (9)
  - Diabetes mellitus [Unknown]
  - Dystonia [Recovering/Resolving]
  - Obesity [Unknown]
  - Hypertension [Unknown]
  - Asthenia [Recovering/Resolving]
  - Hypophagia [Recovering/Resolving]
  - Gait disturbance [Recovering/Resolving]
  - Chorea [Recovering/Resolving]
  - Dyskinesia [Recovering/Resolving]
